FAERS Safety Report 13819195 (Version 1)
Quarter: 2017Q3

REPORT INFORMATION
  Report Type: Spontaneous
  Country: CA (occurrence: US)
  Receive Date: 20170731
  Receipt Date: 20170731
  Transmission Date: 20171127
  Serious: Yes (Other)
  Sender: FDA-Public Use
  Company Number: None

PATIENT
  Sex: Male
  Weight: 60.75 kg

DRUGS (8)
  1. STINGING NETTLE [Concomitant]
     Active Substance: HERBALS
  2. CLA [Concomitant]
  3. AVAPRO [Concomitant]
     Active Substance: IRBESARTAN
  4. BECOMPLEX [Concomitant]
  5. CIPRO XL [Suspect]
     Active Substance: CIPROFLOXACIN\CIPROFLOXACIN HYDROCHLORIDE
     Indication: BIOPSY PROSTATE
     Dosage: ?          QUANTITY:3 TABLET(S);?
     Route: 048
     Dates: start: 20170605, end: 20170608
  6. SAWPAMELTTO [Concomitant]
  7. MULTIVITAMIN [Concomitant]
     Active Substance: VITAMINS
  8. VITAMIN C [Concomitant]
     Active Substance: ASCORBIC ACID

REACTIONS (11)
  - Tendon rupture [None]
  - Heart rate irregular [None]
  - Dizziness [None]
  - Paraesthesia [None]
  - Vision blurred [None]
  - Hypoaesthesia [None]
  - Pain [None]
  - Joint stiffness [None]
  - Sleep disorder [None]
  - Feeling abnormal [None]
  - Myalgia [None]

NARRATIVE: CASE EVENT DATE: 20170608
